FAERS Safety Report 13690257 (Version 3)
Quarter: 2017Q3

REPORT INFORMATION
  Report Type: Spontaneous
  Country: US (occurrence: US)
  Receive Date: 20170626
  Receipt Date: 20170804
  Transmission Date: 20171127
  Serious: No
  Sender: FDA-Public Use
  Company Number: US-INCYTE CORPORATION-2017IN004748

PATIENT

DRUGS (1)
  1. JAKAFI [Suspect]
     Active Substance: RUXOLITINIB
     Indication: MYELOFIBROSIS
     Dosage: 10 MG, BID
     Route: 048
     Dates: start: 20160614

REACTIONS (5)
  - Dry skin [Unknown]
  - Drug dose omission [Unknown]
  - Memory impairment [Unknown]
  - Cerebrospinal fluid leakage [Unknown]
  - Headache [Unknown]

NARRATIVE: CASE EVENT DATE: 2016
